FAERS Safety Report 8460701 (Version 5)
Quarter: 2014Q1

REPORT INFORMATION
  Report Type: Report from Study
  Country: KR (occurrence: KR)
  Receive Date: 20120315
  Receipt Date: 20140303
  Transmission Date: 20141002
  Serious: Yes (Hospitalization)
  Sender: FDA-Public Use
  Company Number: KR-MPIJNJ-2012-01720

PATIENT
  Sex: 0

DRUGS (7)
  1. VELCADE [Suspect]
     Indication: PLASMA CELL MYELOMA
     Dosage: 1.3 MG/M2, UNK
     Route: 042
     Dates: start: 20111223, end: 20120206
  2. MELPHALAN [Suspect]
     Indication: PLASMA CELL MYELOMA
     Dosage: 9 MG/M2, UNK
     Route: 065
     Dates: start: 20111223, end: 20111226
  3. PREDNISOLONE [Suspect]
     Indication: PLASMA CELL MYELOMA
     Dosage: 60 MG/M2, UNK
     Route: 065
     Dates: start: 20111223, end: 20111226
  4. MAGNESIUM OXIDE [Concomitant]
     Indication: CONSTIPATION
     Dosage: 250 MG, UNK
     Route: 048
     Dates: start: 20111230, end: 20120226
  5. CIPROFLOXACIN [Concomitant]
     Indication: ANTIBIOTIC THERAPY
     Dosage: 200 MG, UNK
     Route: 042
     Dates: start: 20120217, end: 20120228
  6. CHLORPHENIRAMINE                   /00072501/ [Concomitant]
     Indication: PROPHYLAXIS
     Dosage: 4 MG, UNK
     Route: 042
     Dates: start: 20120223, end: 20120223
  7. AZEPTIN                            /00884001/ [Concomitant]
     Indication: DYSPNOEA
     Dosage: 1 MG, UNK
     Route: 048
     Dates: start: 20120223, end: 20120305

REACTIONS (5)
  - Enterocolitis infectious [Recovered/Resolved]
  - Decreased appetite [Recovered/Resolved]
  - Constipation [Recovered/Resolved]
  - Diarrhoea [Recovered/Resolved]
  - Urticaria [Recovered/Resolved]
